FAERS Safety Report 8997758 (Version 1)
Quarter: 2013Q1

REPORT INFORMATION
  Report Type: Report from Study
  Country: HU (occurrence: HU)
  Receive Date: 20130104
  Receipt Date: 20130104
  Transmission Date: 20140127
  Serious: Yes (Death)
  Sender: FDA-Public Use
  Company Number: HU-TEVA-378969USA

PATIENT
  Age: 50 Year
  Sex: Female

DRUGS (2)
  1. TREANDA [Suspect]
     Route: 042
  2. RITUXIMAB [Suspect]
     Route: 042

REACTIONS (1)
  - Autoimmune haemolytic anaemia [Fatal]
